FAERS Safety Report 23849398 (Version 1)
Quarter: 2024Q2

REPORT INFORMATION
  Report Type: Spontaneous
  Country: US (occurrence: None)
  Receive Date: 20240512
  Receipt Date: 20240512
  Transmission Date: 20240715
  Serious: Yes (Hospitalization)
  Sender: FDA-Public Use
  Company Number: None

PATIENT
  Age: 82 Year
  Sex: Male
  Weight: 82.5 kg

DRUGS (1)
  1. EMPAGLIFLOZIN [Suspect]
     Active Substance: EMPAGLIFLOZIN
     Dosage: FREQUENCY : AS DIRECTED;?
     Route: 048
     Dates: start: 20200226, end: 20200601

REACTIONS (4)
  - Pruritus [None]
  - Rash [None]
  - Fungal infection [None]
  - Genital infection [None]

NARRATIVE: CASE EVENT DATE: 20200601
